FAERS Safety Report 7427331-5 (Version None)
Quarter: 2011Q2

REPORT INFORMATION
  Report Type: 
  Country: None (occurrence: None)
  Receive Date: 20110420
  Receipt Date: 20110407
  Transmission Date: 20111010
  Serious: Yes (Hospitalization, Other)
  Sender: FDA-Public Use
  Company Number: US-ELI_LILLY_AND_COMPANY-US201102007051

PATIENT
  Sex: Female

DRUGS (6)
  1. OMEPRAZOLE [Concomitant]
  2. LORATADINE [Concomitant]
     Indication: HYPERSENSITIVITY
  3. FORTEO [Suspect]
     Indication: OSTEOPOROSIS
     Dosage: 20 UG, DAILY (1/D)
  4. TOPROL-XL [Concomitant]
     Indication: BLOOD PRESSURE
  5. METOPROLOL [Concomitant]
  6. FORTEO [Suspect]
     Dosage: 20 UG, QD

REACTIONS (6)
  - PELVIC FRACTURE [None]
  - UPPER LIMB FRACTURE [None]
  - MALAISE [None]
  - DRUG DOSE OMISSION [None]
  - FEMUR FRACTURE [None]
  - FALL [None]
